FAERS Safety Report 24772088 (Version 1)
Quarter: 2024Q4

REPORT INFORMATION
  Report Type: Spontaneous
  Country: US (occurrence: US)
  Receive Date: 20241224
  Receipt Date: 20241224
  Transmission Date: 20250115
  Serious: No
  Sender: SANOFI AVENTIS
  Company Number: US-SA-2024SA378543

PATIENT
  Age: 8 Year
  Sex: Male
  Weight: 27.07 kg

DRUGS (5)
  1. DUPIXENT [Suspect]
     Active Substance: DUPILUMAB
     Dosage: 200MG/1.14ML, QOW
     Route: 058
     Dates: start: 202412
  2. DUPIXENT [Suspect]
     Active Substance: DUPILUMAB
     Dosage: 400MG,1X
     Route: 058
     Dates: start: 20241216, end: 20241216
  3. EPINEPHRINE [Concomitant]
     Active Substance: EPINEPHRINE
  4. DUPIXENT [Concomitant]
     Active Substance: DUPILUMAB
     Indication: Product used for unknown indication
     Route: 058
     Dates: start: 20241216
  5. DUPIXENT [Concomitant]
     Active Substance: DUPILUMAB
     Route: 058

REACTIONS (3)
  - Oropharyngeal pain [Not Recovered/Not Resolved]
  - Pharyngitis streptococcal [Not Recovered/Not Resolved]
  - Vision blurred [Not Recovered/Not Resolved]

NARRATIVE: CASE EVENT DATE: 20241216
